FAERS Safety Report 7219882-3 (Version None)
Quarter: 2011Q1

REPORT INFORMATION
  Report Type: 
  Country: None (occurrence: None)
  Receive Date: 20110111
  Receipt Date: 20110107
  Transmission Date: 20110831
  Serious: Yes (Hospitalization)
  Sender: FDA-Public Use
  Company Number: IT-ROCHE-751995

PATIENT
  Sex: Female

DRUGS (5)
  1. AVASTIN [Suspect]
     Indication: COLON CANCER
     Dosage: FREQUENCY: ONCE.
     Route: 042
     Dates: start: 20110105, end: 20110105
  2. LEVOFOLENE [Concomitant]
     Route: 042
     Dates: start: 20110105, end: 20110105
  3. IRINOTECAN [Concomitant]
     Dosage: DRUG REPORTED AS IRINOTECAN TEVA.
     Route: 042
     Dates: start: 20110105, end: 20110105
  4. DESAMETASONE [Concomitant]
     Dosage: DRUG REPORTED AS SOLDESAN.
     Route: 042
  5. FLUOROURACIL [Concomitant]
     Dosage: DRUG REPORTED AS FLUOROURACIL TEVA.
     Route: 042
     Dates: start: 20110105, end: 20110105

REACTIONS (2)
  - FEELING HOT [None]
  - MUSCULOSKELETAL STIFFNESS [None]
